FAERS Safety Report 13890345 (Version 1)
Quarter: 2017Q3

REPORT INFORMATION
  Report Type: Spontaneous
  Country: US (occurrence: US)
  Receive Date: 20170822
  Receipt Date: 20170822
  Transmission Date: 20171127
  Serious: Yes (Other)
  Sender: FDA-Public Use
  Company Number: US-BAXTER-2017BAX030196

PATIENT
  Age: 50 Year
  Sex: Female

DRUGS (1)
  1. CEFTRIAXONE AND DEXTROSE [Suspect]
     Active Substance: CEFTRIAXONE SODIUM
     Indication: ANTIBIOTIC THERAPY
     Route: 065

REACTIONS (3)
  - Dermatitis bullous [Recovering/Resolving]
  - Fixed eruption [Recovering/Resolving]
  - Disease recurrence [Recovering/Resolving]
